FAERS Safety Report 25918562 (Version 2)
Quarter: 2025Q4

REPORT INFORMATION
  Report Type: Report from Study
  Country: GB (occurrence: AU)
  Receive Date: 20251014
  Receipt Date: 20251223
  Transmission Date: 20260118
  Serious: Yes (Hospitalization, Other)
  Sender: SAMSUNG BIOEPIS
  Company Number: GB-SAMSUNG BIOEPIS-SB-2025-26915

PATIENT
  Sex: Male

DRUGS (1)
  1. ETANERCEPT [Suspect]
     Active Substance: ETANERCEPT
     Indication: Rheumatoid arthritis
     Dosage: LAST ADMINISTERED MID AUGUST
     Route: 058
     Dates: start: 20250722

REACTIONS (4)
  - Influenza [Not Recovered/Not Resolved]
  - Illness [Unknown]
  - Immunosuppression [Unknown]
  - Lower respiratory tract infection [Unknown]
